FAERS Safety Report 6484519-8 (Version None)
Quarter: 2009Q4

REPORT INFORMATION
  Report Type: 
  Country: None (occurrence: None)
  Receive Date: 20091209
  Receipt Date: 20091201
  Transmission Date: 20100525
  Serious: Yes (Hospitalization, Other)
  Sender: FDA-Public Use
  Company Number: PHHY2009US53349

PATIENT
  Sex: Male
  Weight: 61.6 kg

DRUGS (5)
  1. EXJADE [Suspect]
     Indication: SICKLE CELL ANAEMIA
     Dosage: 1250 MG EVERY OTHER DAY
     Route: 048
     Dates: start: 20060726
  2. EXJADE [Suspect]
     Indication: IRON OVERLOAD
  3. FOLIC ACID [Concomitant]
     Indication: SICKLE CELL ANAEMIA
     Dosage: 1 MG DAILY
     Route: 048
  4. ASPIRIN [Concomitant]
     Indication: CEREBROVASCULAR ACCIDENT
     Dosage: 81 MG DAILY
     Route: 048
  5. CELEXA [Concomitant]
     Indication: ANGER
     Dosage: 20 MG DAILY
     Route: 048

REACTIONS (3)
  - BLOOD BILIRUBIN INCREASED [None]
  - CHOLECYSTECTOMY [None]
  - CHOLECYSTITIS ACUTE [None]
